FAERS Safety Report 19032784 (Version 1)
Quarter: 2021Q1

REPORT INFORMATION
  Report Type: Spontaneous
  Country: MT (occurrence: MT)
  Receive Date: 20210319
  Receipt Date: 20210319
  Transmission Date: 20210420
  Serious: Yes (Death)
  Sender: FDA-Public Use
  Company Number: MT-PFIZER INC-2021287798

PATIENT
  Age: 76 Year
  Sex: Female
  Weight: 73 kg

DRUGS (7)
  1. DIGOXIN. [Concomitant]
     Active Substance: DIGOXIN
     Indication: ATRIAL FIBRILLATION
     Dosage: 0.125 MG
  2. ENOXAPARIN [Suspect]
     Active Substance: ENOXAPARIN
     Indication: PROPHYLAXIS
     Dosage: 40 MG, 1X/DAY
     Dates: start: 20210110, end: 20210218
  3. METHOTREXATE SODIUM. [Suspect]
     Active Substance: METHOTREXATE SODIUM
     Indication: POLYMYALGIA RHEUMATICA
     Dosage: 12.5 MG, WEEKLY (12.5MG WEEKLY LONG TERM USE AT LEAST SINCE 2013)
     Dates: end: 20210218
  4. GLICLAZIDE [Concomitant]
     Active Substance: GLICLAZIDE
     Indication: POLYMYALGIA RHEUMATICA
     Dosage: 80 MG (FREQ:8 H;80MG TDS LONG TERM)
  5. PREDNISOLONE. [Concomitant]
     Active Substance: PREDNISOLONE
     Indication: POLYMYALGIA RHEUMATICA
     Dosage: 5 MG (FREQ:24 H;5 MG DAILY LONG TERM)
  6. DEMECLOCYCLINE [Suspect]
     Active Substance: DEMECLOCYCLINE
     Indication: HYPONATRAEMIA
     Dosage: 600 MG (FREQ:12 H;600MG BD)
     Dates: start: 20210111, end: 20210218
  7. BUMETANIDE. [Concomitant]
     Active Substance: BUMETANIDE
     Indication: CARDIAC FAILURE
     Dosage: 1 MG (FREQ:12 H;1MG BD FOR HF)
     Dates: start: 20210212

REACTIONS (1)
  - Pancytopenia [Fatal]

NARRATIVE: CASE EVENT DATE: 20210218
